FAERS Safety Report 14696156 (Version 1)
Quarter: 2018Q1

REPORT INFORMATION
  Report Type: Spontaneous
  Country: US (occurrence: US)
  Receive Date: 20180329
  Receipt Date: 20180329
  Transmission Date: 20180509
  Serious: No
  Sender: FDA-Public Use
  Company Number: US-SA-2017SA128962

PATIENT
  Age: 55 Year
  Sex: Female

DRUGS (3)
  1. ALLEGRA D-12 HOUR [Suspect]
     Active Substance: FEXOFENADINE HYDROCHLORIDE\PSEUDOEPHEDRINE HYDROCHLORIDE
     Indication: SNEEZING
     Dosage: 60 MG / 120MG
     Route: 048
     Dates: start: 20170618, end: 20170619
  2. ALLEGRA D-12 HOUR [Suspect]
     Active Substance: FEXOFENADINE HYDROCHLORIDE\PSEUDOEPHEDRINE HYDROCHLORIDE
     Indication: NASAL CONGESTION
     Dosage: 60 MG / 120MG
     Route: 048
     Dates: start: 20170618, end: 20170619
  3. ALLEGRA D-12 HOUR [Suspect]
     Active Substance: FEXOFENADINE HYDROCHLORIDE\PSEUDOEPHEDRINE HYDROCHLORIDE
     Indication: HYPERSENSITIVITY
     Dosage: 60 MG / 120MG
     Route: 048
     Dates: start: 20170618, end: 20170619

REACTIONS (3)
  - Insomnia [Unknown]
  - Drug ineffective [Unknown]
  - Feeling abnormal [Unknown]
